FAERS Safety Report 18612710 (Version 2)
Quarter: 2020Q4

REPORT INFORMATION
  Report Type: Spontaneous
  Country: US (occurrence: US)
  Receive Date: 20201214
  Receipt Date: 20201222
  Transmission Date: 20210114
  Serious: Yes (Hospitalization, Other)
  Sender: FDA-Public Use
  Company Number: US-IGSA-BIG0012437

PATIENT
  Age: 66 Year
  Sex: Male

DRUGS (6)
  1. AMLODIPINE [Concomitant]
     Active Substance: AMLODIPINE BESYLATE
  2. GAMMAGARD [Suspect]
     Active Substance: HUMAN IMMUNOGLOBULIN G
     Indication: HYPOGAMMAGLOBULINAEMIA
     Dosage: UNK UNK, Q.M.T.
     Dates: start: 1995
  3. TACROLIMUS. [Concomitant]
     Active Substance: TACROLIMUS
  4. ASPIRIN [ACETYLSALICYLIC ACID] [Concomitant]
     Active Substance: ASPIRIN
  5. HUMAN NORMAL IMMUNOGLOBULIN (IV) [Suspect]
     Active Substance: HUMAN IMMUNOGLOBULIN G
     Indication: HYPOGAMMAGLOBULINAEMIA
     Dosage: UNK UNK, Q.M.T.
     Dates: start: 1995
  6. PROPANOLOL HYDROCHLORIDE [Concomitant]
     Active Substance: PROPRANOLOL HYDROCHLORIDE

REACTIONS (10)
  - Hepatitis B core antibody positive [Recovering/Resolving]
  - Malaise [Recovering/Resolving]
  - Liver function test increased [Recovering/Resolving]
  - Hepatitis B core antigen positive [Recovering/Resolving]
  - Fatigue [Recovering/Resolving]
  - Acute hepatitis B [Recovering/Resolving]
  - Hepatitis B surface antigen positive [Recovering/Resolving]
  - Suspected transmission of an infectious agent via product [Recovering/Resolving]
  - Hepatitis B DNA assay positive [Recovering/Resolving]
  - Hepatitis B e antigen positive [Recovering/Resolving]
